FAERS Safety Report 14465641 (Version 1)
Quarter: 2018Q1

REPORT INFORMATION
  Report Type: Spontaneous
  Country: FR (occurrence: FR)
  Receive Date: 20180131
  Receipt Date: 20180131
  Transmission Date: 20180509
  Serious: Yes (Hospitalization)
  Sender: FDA-Public Use
  Company Number: FR-TEVA-2018-FR-849590

PATIENT
  Age: 51 Year
  Sex: Male
  Weight: 91 kg

DRUGS (5)
  1. VIRAMUNE 400 MG, PROLONGED-RELEASE TABLET [Concomitant]
     Indication: HIV INFECTION
     Route: 048
  2. KIVEXA [Concomitant]
     Active Substance: ABACAVIR SULFATE\LAMIVUDINE
     Indication: HIV INFECTION
     Route: 048
  3. QUETIAPINE. [Suspect]
     Active Substance: QUETIAPINE
     Indication: SUICIDE ATTEMPT
     Route: 048
     Dates: start: 20171104, end: 20171104
  4. VENLAFAXINE [Suspect]
     Active Substance: VENLAFAXINE HYDROCHLORIDE
     Indication: SUICIDE ATTEMPT
     Route: 048
     Dates: start: 20171104, end: 20171104
  5. LARGACTIL 4 POUR CENT, ORAL SOLUTION DROPS [Suspect]
     Active Substance: CHLORPROMAZINE HYDROCHLORIDE
     Indication: SUICIDE ATTEMPT
     Route: 048
     Dates: start: 20171104, end: 20171104

REACTIONS (4)
  - Encephalopathy [Recovered/Resolved]
  - Suicide attempt [None]
  - Cardiac disorder [Recovered/Resolved]
  - Somnolence [Recovered/Resolved]

NARRATIVE: CASE EVENT DATE: 20171104
